FAERS Safety Report 9910052 (Version 1)
Quarter: 2014Q1

REPORT INFORMATION
  Report Type: Spontaneous
  Country: IT (occurrence: IT)
  Receive Date: 20140219
  Receipt Date: 20140219
  Transmission Date: 20141002
  Serious: Yes (Other)
  Sender: FDA-Public Use
  Company Number: IT-WATSON-2014-02513

PATIENT
  Age: 33 Year
  Sex: Male

DRUGS (5)
  1. PREGABALIN (UNKNOWN) [Suspect]
     Indication: GENERALISED ANXIETY DISORDER
     Dosage: 75 MG, DAILY
     Route: 048
  2. PREGABALIN (UNKNOWN) [Suspect]
     Dosage: 75 MG, BID
     Route: 048
  3. PREGABALIN (UNKNOWN) [Suspect]
     Dosage: 150 MG, BID
     Route: 048
  4. PREGABALIN (UNKNOWN) [Suspect]
     Dosage: 1500 MG, DAILY
     Route: 048
  5. OLANZAPINE [Concomitant]
     Indication: GENERALISED ANXIETY DISORDER
     Dosage: 10 MG, DAILY
     Route: 065

REACTIONS (5)
  - Myositis [Recovered/Resolved]
  - Drug withdrawal syndrome [Unknown]
  - Intentional drug misuse [Unknown]
  - Overdose [Unknown]
  - Incorrect route of drug administration [Unknown]
